FAERS Safety Report 12842241 (Version 8)
Quarter: 2017Q2

REPORT INFORMATION
  Report Type: Report from Study
  Country: JP (occurrence: JP)
  Receive Date: 20161013
  Receipt Date: 20170520
  Transmission Date: 20170830
  Serious: Yes (Death, Other)
  Sender: FDA-Public Use
  Company Number: JP-AMGEN-JPNCT2016080170

PATIENT
  Age: 72 Year
  Sex: Male
  Weight: 52.3 kg

DRUGS (32)
  1. PANITUMUMAB [Suspect]
     Active Substance: PANITUMUMAB
     Indication: COLON CANCER
     Dosage: 6 MG/KG, Q2WK
     Route: 041
     Dates: start: 20160325, end: 20160506
  2. CALCIUM LEVOFOLINATE [Concomitant]
     Active Substance: LEVOLEUCOVORIN CALCIUM
     Indication: COLON CANCER
     Dosage: 200 MG/M2, Q2WEEKS
     Route: 041
     Dates: start: 20160325, end: 20160506
  3. CALCIUM LEVOFOLINATE [Concomitant]
     Active Substance: LEVOLEUCOVORIN CALCIUM
     Dosage: 200 MG/M2, Q2WEEKS
     Route: 041
     Dates: start: 20160909, end: 20160923
  4. OLMETEC [Concomitant]
     Active Substance: OLMESARTAN MEDOXOMIL
     Indication: HYPERTENSION
     Dosage: 20 MG, QD
     Route: 048
     Dates: end: 20160927
  5. CALONAL [Concomitant]
     Active Substance: ACETAMINOPHEN
     Dosage: 500 MG, UNK
     Route: 048
     Dates: end: 20160927
  6. TERRA-CORTRIL [Concomitant]
     Active Substance: HYDROCORTISONE ACETATE\OXYTETRACYCLINE HYDROCHLORIDE
     Dosage: UNK, BID
     Route: 062
     Dates: start: 20160325, end: 20160927
  7. LUPRAC [Concomitant]
     Active Substance: TORSEMIDE
     Dosage: 4 MG, QD
     Route: 048
     Dates: end: 20160818
  8. AMLODIPINE [Concomitant]
     Active Substance: AMLODIPINE BESYLATE
     Indication: HYPERTENSION
     Dosage: 2.5 MG, QD
     Route: 048
     Dates: end: 20160927
  9. MINOCYCLINE HYDROCHLORIDE. [Concomitant]
     Active Substance: MINOCYCLINE HYDROCHLORIDE
     Indication: SKIN INFECTION
     Dosage: 100 MG, QD
     Route: 048
     Dates: end: 20160927
  10. 5-FU [Suspect]
     Active Substance: FLUOROURACIL
     Indication: COLON CANCER
     Dosage: 400 MG/M2, Q2WK
     Route: 040
     Dates: start: 20160325, end: 20160506
  11. SOLVEGA [Concomitant]
     Indication: ECZEMA
     Dosage: UNK, BID
     Route: 062
     Dates: start: 20160325, end: 20160927
  12. FERRUM                             /00023505/ [Concomitant]
     Indication: ANAEMIA
     Dosage: 100 MG, QD
     Route: 048
     Dates: end: 20160519
  13. PANITUMUMAB [Suspect]
     Active Substance: PANITUMUMAB
     Dosage: 4.8 MG/KG, Q2WEEKS
     Route: 041
     Dates: start: 20160603, end: 20160805
  14. 5-FU [Suspect]
     Active Substance: FLUOROURACIL
     Dosage: 1600 MG/M2, Q2WK
     Route: 041
     Dates: start: 20160909, end: 20160923
  15. OXALIPLATIN. [Suspect]
     Active Substance: OXALIPLATIN
     Dosage: 65 MG/M2, Q2WEEKS
     Route: 041
     Dates: start: 20160603, end: 20160617
  16. EURODIN (ESTAZOLAM) [Concomitant]
     Active Substance: ESTAZOLAM
     Indication: INSOMNIA
     Dosage: 1 MG, QD
     Route: 048
     Dates: end: 20160927
  17. TAKECAB [Concomitant]
     Active Substance: VONOPRAZAN FUMURATE
     Dosage: 20 MG, QD
     Route: 048
     Dates: end: 20160927
  18. MINOCYCLINE HYDROCHLORIDE. [Concomitant]
     Active Substance: MINOCYCLINE HYDROCHLORIDE
     Indication: PROPHYLAXIS
  19. ATORVASTATIN [Concomitant]
     Active Substance: ATORVASTATIN
     Dosage: 5 MG, QD
     Route: 048
     Dates: end: 20160927
  20. PANITUMUMAB [Suspect]
     Active Substance: PANITUMUMAB
     Dosage: 3.6 MG/KG, Q2WEEKS
     Route: 041
     Dates: start: 20160909, end: 20160923
  21. BROTIZOLAM [Concomitant]
     Active Substance: BROTIZOLAM
     Indication: INSOMNIA
     Dosage: 0.25 MG, QD
     Route: 048
     Dates: end: 20160927
  22. LAC-B GRANULAR POWDER N [Concomitant]
     Indication: CONSTIPATION
     Dosage: 3 MG, TID
     Route: 048
     Dates: end: 20160927
  23. MAGMITT [Concomitant]
     Active Substance: MAGNESIUM OXIDE
     Indication: CONSTIPATION
     Dosage: 330 MG, TID
     Route: 048
     Dates: end: 20160927
  24. OLOPATADINE HYDROCHLORIDE. [Concomitant]
     Active Substance: OLOPATADINE HYDROCHLORIDE
     Dosage: 10 MG, BID
     Route: 048
     Dates: end: 20160927
  25. SOLVEGA [Concomitant]
     Indication: DERMATITIS
  26. OXALIPLATIN. [Suspect]
     Active Substance: OXALIPLATIN
     Dosage: 50 MG/M2, Q2WEEKS
     Route: 041
     Dates: start: 20160701, end: 20160701
  27. HEPARINOID [Concomitant]
     Active Substance: CHONDROITIN SULFATE (BOVINE)
     Dosage: UNK, BID
     Route: 062
     Dates: start: 20160325, end: 20160927
  28. 5-FU [Suspect]
     Active Substance: FLUOROURACIL
     Dosage: 400 MG/M2, Q2WK
     Route: 040
     Dates: start: 20160603, end: 20160805
  29. OXALIPLATIN. [Suspect]
     Active Substance: OXALIPLATIN
     Indication: COLON CANCER
     Dosage: 85 MG/M2, Q2WEEKS
     Route: 041
     Dates: start: 20160325, end: 20160506
  30. 5-FU [Suspect]
     Active Substance: FLUOROURACIL
     Dosage: 2400 MG/M2, Q2WK
     Route: 041
     Dates: start: 20160325, end: 20160506
  31. 5-FU [Suspect]
     Active Substance: FLUOROURACIL
     Dosage: 2000 MG/M2, Q2WK
     Route: 041
     Dates: start: 20160603, end: 20160805
  32. CALCIUM LEVOFOLINATE [Concomitant]
     Active Substance: LEVOLEUCOVORIN CALCIUM
     Dosage: 200 MG/M2, Q2WEEKS
     Route: 041
     Dates: start: 20160603, end: 20160805

REACTIONS (9)
  - Peripheral sensory neuropathy [Recovering/Resolving]
  - Fatigue [Not Recovered/Not Resolved]
  - Dermatitis acneiform [Not Recovered/Not Resolved]
  - Diarrhoea [Recovered/Resolved]
  - Death [Fatal]
  - Hypomagnesaemia [Not Recovered/Not Resolved]
  - Skin disorder [Recovering/Resolving]
  - Dry skin [Not Recovered/Not Resolved]
  - Paronychia [Recovering/Resolving]

NARRATIVE: CASE EVENT DATE: 20160331
